FAERS Safety Report 15674293 (Version 1)
Quarter: 2018Q4

REPORT INFORMATION
  Report Type: Spontaneous
  Country: US (occurrence: US)
  Receive Date: 20181119
  Receipt Date: 20181119
  Transmission Date: 20190205
  Serious: Yes (Disabling)
  Sender: FDA-Public Use
  Company Number: None

PATIENT
  Age: 41 Year
  Sex: Female
  Weight: 86.18 kg

DRUGS (1)
  1. PARAGARD T 380A [Suspect]
     Active Substance: COPPER

REACTIONS (7)
  - Feeling abnormal [None]
  - Hypothyroidism [None]
  - Arthralgia [None]
  - Menorrhagia [None]
  - Hypoaesthesia [None]
  - Headache [None]
  - Gluten sensitivity [None]

NARRATIVE: CASE EVENT DATE: 20150214
